FAERS Safety Report 5525831-6 (Version None)
Quarter: 2007Q4

REPORT INFORMATION
  Report Type: 
  Country: None (occurrence: None)
  Receive Date: 20071126
  Receipt Date: 20071115
  Transmission Date: 20080405
  Serious: Yes (Other)
  Sender: FDA-Public Use
  Company Number: PHBS2007AT13562

PATIENT
  Age: 6 Year
  Sex: Female
  Weight: 19 kg

DRUGS (2)
  1. GLEEVEC [Suspect]
     Indication: ASTROCYTOMA
     Dosage: 200 MG/D
     Route: 065
     Dates: start: 20070701
  2. GLEEVEC [Suspect]
     Dosage: 300 MG/D
     Route: 065

REACTIONS (3)
  - MALIGNANT NEOPLASM PROGRESSION [None]
  - MYOTONIA [None]
  - TONIC CLONIC MOVEMENTS [None]
